FAERS Safety Report 9651303 (Version 2)
Quarter: 2013Q4

REPORT INFORMATION
  Report Type: Spontaneous
  Country: JP (occurrence: JP)
  Receive Date: 20131029
  Receipt Date: 20131029
  Transmission Date: 20140711
  Serious: Yes (Life-Threatening, Hospitalization, Other)
  Sender: FDA-Public Use
  Company Number: JP-PFIZER INC-2013200888

PATIENT
  Age: 36 Year
  Sex: Male
  Weight: 61 kg

DRUGS (8)
  1. SUTENT [Suspect]
     Indication: RENAL CELL CARCINOMA
     Dosage: 12.5 MG, 4X/DAY
     Route: 048
     Dates: start: 20130618, end: 20130702
  2. CODEINE PHOSPHATE [Concomitant]
     Indication: COUGH
     Dosage: 20 MG, 3X/DAY
     Route: 048
     Dates: start: 20130521, end: 20130702
  3. MAG-LAX [Concomitant]
     Indication: CONSTIPATION
     Dosage: 330 MG, 3X/DAY
     Route: 048
     Dates: start: 20130521, end: 20130702
  4. FERROMIA [Concomitant]
     Indication: ANAEMIA
     Dosage: 50 MG, 2X/DAY
     Route: 048
     Dates: start: 20130521, end: 20130702
  5. ADONA [Concomitant]
     Indication: HAEMOPTYSIS
     Dosage: 30 MG, 3X/DAY
     Route: 048
     Dates: start: 20130521, end: 20130702
  6. NAIXAN [Concomitant]
     Indication: TUMOUR ASSOCIATED FEVER
     Dosage: 100 MG, 3X/DAY
     Route: 048
     Dates: start: 20130614, end: 20130702
  7. TAKEPRON [Concomitant]
     Indication: PROPHYLAXIS AGAINST GASTROINTESTINAL ULCER
     Dosage: 15 MG, 1X/DAY
     Route: 048
     Dates: start: 20130615, end: 20130702
  8. LENDORMIN [Concomitant]
     Indication: INSOMNIA
     Dosage: 0.25 MG, 1X/DAY
     Route: 048
     Dates: start: 20130521, end: 20130702

REACTIONS (5)
  - Tumour lysis syndrome [Recovered/Resolved]
  - Anal ulcer [Recovering/Resolving]
  - Necrotising fasciitis [Recovering/Resolving]
  - Disseminated intravascular coagulation [Recovered/Resolved]
  - Neutropenia [Recovered/Resolved]
